FAERS Safety Report 5061791-2 (Version None)
Quarter: 2006Q3

REPORT INFORMATION
  Report Type: 
  Country: None (occurrence: None)
  Receive Date: 20060703
  Receipt Date: 20060117
  Transmission Date: 20061208
  Serious: No
  Sender: FDA-Public Use
  Company Number: 2006S1000604

PATIENT
  Age: 69 Year
  Sex: Male

DRUGS (10)
  1. CLOZAPINE [Suspect]
     Indication: SCHIZOPHRENIA
     Dosage: 350 MG;HS;PO
     Route: 048
  2. FLUVOXAMINE MALEATE [Concomitant]
  3. VENLAFAXINE HCL [Concomitant]
  4. OLANZAPINE [Concomitant]
  5. LISINOPRIL [Concomitant]
  6. TOCOPHEROL CONCENTRATE CAP [Concomitant]
  7. OXYBUTYNIN HYDROCHLORIDE [Concomitant]
  8. RANITIDINE [Concomitant]
  9. VITAMINS NOS [Concomitant]
  10. ATORVASTATIN CALCIUM [Concomitant]

REACTIONS (1)
  - GRANULOCYTOPENIA [None]
